FAERS Safety Report 5165597-5 (Version None)
Quarter: 2006Q4

REPORT INFORMATION
  Report Type: 
  Country: None (occurrence: None)
  Receive Date: 20061206
  Receipt Date: 20061201
  Transmission Date: 20070319
  Serious: Yes (Hospitalization)
  Sender: FDA-Public Use
  Company Number: LT-GLAXOSMITHKLINE-B0449390A

PATIENT
  Age: 10 Year
  Sex: Male

DRUGS (4)
  1. AUGMENTIN '125' [Suspect]
     Indication: PYREXIA
     Route: 065
     Dates: start: 20061105, end: 20061109
  2. UNKNOWN MEDICATION [Suspect]
     Indication: DRUG USE FOR UNKNOWN INDICATION
  3. IBUMETIN [Suspect]
     Indication: PYREXIA
     Dates: start: 20061105, end: 20061109
  4. GELOMYRTOL [Suspect]
     Indication: PYREXIA
     Route: 065
     Dates: start: 20061105, end: 20061109

REACTIONS (4)
  - EYE DISORDER [None]
  - MUCOUS MEMBRANE DISORDER [None]
  - SKIN LESION [None]
  - STEVENS-JOHNSON SYNDROME [None]
